FAERS Safety Report 12109988 (Version 2)
Quarter: 2016Q2

REPORT INFORMATION
  Report Type: Spontaneous
  Country: US (occurrence: US)
  Receive Date: 20160224
  Receipt Date: 20160405
  Transmission Date: 20160815
  Serious: Yes (Other)
  Sender: FDA-Public Use
  Company Number: US-009507513-1602USA009013

PATIENT
  Age: 61 Year
  Sex: Male
  Weight: 78.8 kg

DRUGS (1)
  1. ZERBAXA [Suspect]
     Active Substance: CEFTOLOZANE SULFATE\TAZOBACTAM SODIUM
     Indication: DEVICE RELATED INFECTION
     Dosage: 1.5 GRAMS EVERY 8 HOURS, WITH AN EXTENDED INFUSION TIME OF 4 HOURS
     Route: 041

REACTIONS (2)
  - Acute kidney injury [Unknown]
  - Off label use [Unknown]
